FAERS Safety Report 8484284-9 (Version None)
Quarter: 2012Q3

REPORT INFORMATION
  Report Type: 
  Country: None (occurrence: None)
  Receive Date: 20120703
  Receipt Date: 20120625
  Transmission Date: 20120928
  Serious: Yes (Hospitalization)
  Sender: FDA-Public Use
  Company Number: US-BAYER-201013346NA

PATIENT
  Age: 19 Year
  Sex: Female
  Weight: 57.596 kg

DRUGS (14)
  1. VIRAL VACCINES [Concomitant]
     Dosage: UNK
     Dates: start: 20070402
  2. LEVAQUIN [Concomitant]
     Dosage: 500 MG, UNK
     Route: 048
     Dates: start: 20080210
  3. CENTRALLY ACTING SYMPATHOMIMETICS [Concomitant]
     Indication: ATTENTION DEFICIT/HYPERACTIVITY DISORDER
     Dosage: 50 MG, QD
     Route: 048
     Dates: start: 20080222
  4. VIRAL VACCINES [Concomitant]
     Dosage: UNK
     Dates: start: 20070723
  5. YAZ [Suspect]
     Indication: DYSMENORRHOEA
     Dosage: UNK UNK, UNK
     Route: 048
     Dates: start: 20070510, end: 20080310
  6. YASMIN [Suspect]
     Dosage: UNK
  7. IBUPROFEN [Concomitant]
  8. PHENAZOPYRIDINE HCL TAB [Concomitant]
     Dosage: 200 MG, UNK
     Route: 048
     Dates: start: 20080210
  9. OTHER ANALGESICS AND ANTIPYRETICS [Concomitant]
  10. NAPROXEN [Concomitant]
  11. DOXYCYCLINE [Concomitant]
     Indication: INFECTION
     Dosage: 100 MG, QD
     Route: 048
  12. TOPAMAX [Concomitant]
     Dosage: 25 MG, UNK
     Route: 048
     Dates: start: 20080111
  13. HYDROCODONE BITARTRATE AND ACETAMINOPHEN [Concomitant]
     Dosage: 500 MG, UNK
     Route: 048
     Dates: start: 20080210
  14. CIPROFLOXACIN HYDROCHLORIDE [Concomitant]
     Dosage: 500 MG, UNK
     Dates: start: 20080104

REACTIONS (4)
  - PULMONARY EMBOLISM [None]
  - THROMBOSIS [None]
  - DEEP VEIN THROMBOSIS [None]
  - PULMONARY INFARCTION [None]
